FAERS Safety Report 11227507 (Version 1)
Quarter: 2015Q2

REPORT INFORMATION
  Report Type: Spontaneous
  Country: ZA (occurrence: ZA)
  Receive Date: 20150630
  Receipt Date: 20150630
  Transmission Date: 20150821
  Serious: Yes (Death)
  Sender: FDA-Public Use
  Company Number: ZA-PFIZER INC-2015210768

PATIENT
  Age: 63 Year
  Sex: Female

DRUGS (18)
  1. CLOPAMON [Concomitant]
     Active Substance: METOCLOPRAMIDE
     Indication: NAUSEA
     Dosage: 10 MG, 1X/DAY
     Route: 048
  2. PURATA [Concomitant]
     Indication: ANXIETY
     Dosage: 30 MG, UNK
     Route: 048
  3. EVOREL [Concomitant]
     Indication: MENOPAUSE
     Dosage: 50/3.2MG PATCH
     Route: 062
  4. COVOCORT [Concomitant]
     Indication: ADDISON^S DISEASE
     Dosage: 10 MG, UNK
     Route: 048
  5. FORVENT [Concomitant]
     Indication: BRONCHITIS
     Dosage: 18 MG, UNK
     Route: 048
  6. ARYCOR [Concomitant]
     Indication: TACHYARRHYTHMIA
     Dosage: 200 MG, UNK
     Route: 048
  7. XALATAN [Suspect]
     Active Substance: LATANOPROST
     Indication: GLAUCOMA
     Dosage: 50 GTT, UNK
     Route: 047
  8. MYLAN ESCITALOPRAM [Concomitant]
     Indication: ANTIDEPRESSANT THERAPY
     Dosage: 10 MG, UNK
     Route: 048
  9. SYMBICORD [Concomitant]
     Active Substance: BUDESONIDE\FORMOTEROL
     Indication: ASTHMA
     Dosage: ^120 DOSE^
     Route: 055
  10. ZOFER [Concomitant]
     Indication: NAUSEA
     Dosage: 4 MG, UNK
     Route: 048
  11. EUPHYLLIN RETARD [Concomitant]
     Indication: ASTHMA
     Dosage: 250 MG, UNK
     Route: 048
  12. TRAMCET [Concomitant]
     Active Substance: ACETAMINOPHEN\TRAMADOL
     Indication: PAIN
     Dosage: 325 MG, UNK
     Route: 048
  13. VASOMIL [Concomitant]
     Indication: ANGINA PECTORIS
     Dosage: 80 MG, UNK
     Route: 048
  14. ZOFER [Concomitant]
     Indication: VOMITING
  15. ADCO-ZOLPIDEM [Concomitant]
     Active Substance: ZOLPIDEM TARTRATE
     Indication: INSOMNIA
     Dosage: 10 MG, UNK
     Route: 048
  16. ECOTRIN [Concomitant]
     Active Substance: ASPIRIN
     Indication: ANGINA PECTORIS
     Dosage: 81 MG/24H
     Route: 048
  17. BE-TABS FOLIC ACID [Concomitant]
     Indication: NUTRITIONAL SUPPLEMENTATION
     Dosage: 5 MG, UNK
     Route: 048
  18. LANCAP [Concomitant]
     Indication: GASTRIC ULCER
     Dosage: 30 MG, UNK
     Route: 048

REACTIONS (2)
  - Exposure to chemical pollution [Fatal]
  - Neoplasm malignant [Fatal]

NARRATIVE: CASE EVENT DATE: 20111219
